FAERS Safety Report 7009791-7 (Version None)
Quarter: 2010Q3

REPORT INFORMATION
  Report Type: 
  Country: None (occurrence: None)
  Receive Date: 20100923
  Receipt Date: 20100921
  Transmission Date: 20110219
  Serious: Yes (Death)
  Sender: FDA-Public Use
  Company Number: HU-ROCHE-680302

PATIENT
  Sex: Female
  Weight: 76.6 kg

DRUGS (8)
  1. METHOXY POLYETHYLENE GLYCOL-EPOETIN BETA [Suspect]
     Dosage: DATE OF LAST DOSE PRIOR TO SAE: 31 DECEMBER 2009
     Route: 042
     Dates: start: 20090618
  2. ALFACALCIDOL [Concomitant]
     Dates: start: 20081204
  3. ACETYLSALICYLIC ACID [Concomitant]
     Dates: start: 20080115
  4. CALCIUM GLUCONATE [Concomitant]
     Dates: start: 20081210
  5. FERROGRAD FOLIC [Concomitant]
     Dates: start: 20071004
  6. LOSARTAN POTASSIUM [Concomitant]
     Dates: start: 20100114
  7. SEVELAMER CARBONATE [Concomitant]
     Dates: start: 20090410
  8. CARVEDILOL [Concomitant]
     Dates: start: 20100105

REACTIONS (1)
  - CARDIAC FAILURE [None]
